FAERS Safety Report 7941886-3 (Version None)
Quarter: 2011Q4

REPORT INFORMATION
  Report Type: 
  Country: None (occurrence: None)
  Receive Date: 20111128
  Receipt Date: 20111115
  Transmission Date: 20120403
  Serious: Yes (Hospitalization)
  Sender: FDA-Public Use
  Company Number: US-BAYER-2010-004370

PATIENT
  Age: 23 Year
  Sex: Female
  Weight: 57.596 kg

DRUGS (5)
  1. NSAID'S [Concomitant]
  2. SULFAMETHOXAZOLE AND TRIMETHOPRIM [Concomitant]
  3. YASMIN [Suspect]
     Dosage: UNK
     Route: 048
     Dates: start: 20060823, end: 20070111
  4. INDOMETHACIN [Concomitant]
  5. METOPROLOL TARTRATE [Concomitant]

REACTIONS (4)
  - PAIN [None]
  - PULMONARY EMBOLISM [None]
  - DEEP VEIN THROMBOSIS [None]
  - DYSPNOEA [None]
